FAERS Safety Report 9553685 (Version 1)
Quarter: 2013Q3

REPORT INFORMATION
  Report Type: Spontaneous
  Country: US (occurrence: None)
  Receive Date: 20130924
  Receipt Date: 20130924
  Transmission Date: 20140515
  Serious: Yes (Disabling)
  Sender: FDA-Public Use
  Company Number: None

PATIENT
  Age: 60 Year
  Sex: 0

DRUGS (2)
  1. ATENOLOL [Suspect]
     Indication: HYPERTENSION
     Route: 048
  2. ATENOLOL [Suspect]
     Indication: PALPITATIONS
     Route: 048

REACTIONS (4)
  - Pain [None]
  - Pain in extremity [None]
  - Pain in extremity [None]
  - Quality of life decreased [None]
